FAERS Safety Report 4484395-9 (Version None)
Quarter: 2004Q4

REPORT INFORMATION
  Report Type: 
  Country: None (occurrence: None)
  Receive Date: 20041025
  Receipt Date: 20041014
  Transmission Date: 20050328
  Serious: Yes (Hospitalization)
  Sender: FDA-Public Use
  Company Number: PHEH2004US11055

PATIENT
  Age: 59 Year
  Sex: Female
  Weight: 56 kg

DRUGS (9)
  1. ZOMETA [Suspect]
     Indication: METASTASES TO BONE
     Dosage: 4 MG EVERY 28 DAYS
     Route: 042
     Dates: start: 20041008
  2. NEURONTIN [Concomitant]
     Indication: NEUROPATHY
     Dosage: 200 MG, QHS
     Route: 048
  3. COMPAZINE [Concomitant]
     Indication: NAUSEA
     Dosage: 10 MG, PRN
     Route: 048
  4. TYLENOL [Concomitant]
     Route: 048
  5. ADVIL [Concomitant]
     Indication: PAIN
     Dosage: 200 MG, PRN
     Route: 048
  6. LASIX [Concomitant]
     Indication: FLUID RETENTION
     Dosage: 40 MG, PRN
     Route: 048
  7. K-DUR 10 [Concomitant]
     Indication: HYPERKALAEMIA
     Dosage: 40 MG, BID
     Route: 048
  8. ATIVAN [Concomitant]
     Indication: TREMOR
     Dosage: 1 MG, TID
     Route: 048
  9. IRESSA [Concomitant]
     Dosage: 250 MG, Q12H
     Route: 048
     Dates: start: 20040623

REACTIONS (10)
  - BLOOD CALCIUM DECREASED [None]
  - CONFUSIONAL STATE [None]
  - ELECTROCARDIOGRAM CHANGE [None]
  - HEART RATE ABNORMAL [None]
  - MUSCLE SPASMS [None]
  - MYALGIA [None]
  - NERVOUSNESS [None]
  - PARAESTHESIA [None]
  - TETANY [None]
  - TRISMUS [None]
